FAERS Safety Report 12850222 (Version 3)
Quarter: 2016Q4

REPORT INFORMATION
  Report Type: Spontaneous
  Country: US (occurrence: US)
  Receive Date: 20161014
  Receipt Date: 20161115
  Transmission Date: 20170207
  Serious: No
  Sender: FDA-Public Use
  Company Number: US-BAYER-2016-198995

PATIENT

DRUGS (2)
  1. BETACONNECT [Suspect]
     Active Substance: DEVICE
     Indication: DEVICE THERAPY
  2. BETASERON [Suspect]
     Active Substance: INTERFERON BETA-1B
     Indication: MULTIPLE SCLEROSIS
     Dosage: UNK
     Route: 058

REACTIONS (7)
  - Injection site reaction [None]
  - Rash macular [None]
  - Injection site bruising [None]
  - Adverse drug reaction [None]
  - Injection site bruising [None]
  - Injection site pain [None]
  - Urticaria [None]

NARRATIVE: CASE EVENT DATE: 20161012
